FAERS Safety Report 8053751-4 (Version None)
Quarter: 2011Q4

REPORT INFORMATION
  Report Type: 
  Country: None (occurrence: None)
  Receive Date: 20111213
  Receipt Date: 20110815
  Transmission Date: 20120403
  Serious: No
  Sender: FDA-Public Use
  Company Number: 2011SP038416

PATIENT
  Age: 45 Year
  Sex: Female

DRUGS (14)
  1. SAVELLA [Concomitant]
  2. SINGULAIR [Concomitant]
  3. OMEPRAZOLE [Concomitant]
  4. LORCET-HD [Concomitant]
  5. XANAX [Concomitant]
  6. KLONOPIN [Concomitant]
  7. SYMBICORT [Concomitant]
  8. TOPAMAX [Concomitant]
  9. METHOCARBAMOL [Concomitant]
  10. SAPHRIS [Suspect]
     Indication: INSOMNIA
     Dosage: 10 MG;QD; PO
     Route: 048
  11. VIIBRYD [Suspect]
     Indication: DEPRESSION
     Dosage: 10 MG;QD; PO; 20 MG;QD; PO
     Route: 048
     Dates: start: 20110706, end: 20110713
  12. VIIBRYD [Suspect]
     Indication: DEPRESSION
     Dosage: 10 MG;QD; PO; 20 MG;QD; PO
     Route: 048
     Dates: start: 20110714
  13. ESTRADIOL [Concomitant]
  14. COMBIVENT [Concomitant]

REACTIONS (3)
  - HYPERHIDROSIS [None]
  - HOT FLUSH [None]
  - INAPPROPRIATE SCHEDULE OF DRUG ADMINISTRATION [None]
